FAERS Safety Report 5740626-6 (Version None)
Quarter: 2008Q2

REPORT INFORMATION
  Report Type: 
  Country: None (occurrence: None)
  Receive Date: 20080516
  Receipt Date: 20080508
  Transmission Date: 20081010
  Serious: Yes (Life-Threatening, Hospitalization)
  Sender: FDA-Public Use
  Company Number: B0515166A

PATIENT
  Age: 49 Year
  Sex: Female
  Weight: 65 kg

DRUGS (4)
  1. AUGMENTIN '125' [Suspect]
     Indication: PNEUMONIA
     Dosage: 1000MG TWICE PER DAY
     Dates: start: 20071025, end: 20071026
  2. AMBROXOL [Concomitant]
  3. SUPRASTIN [Concomitant]
     Dosage: 1TAB TWICE PER DAY
     Dates: start: 20071025, end: 20071026
  4. UNKNOWN DRUG [Concomitant]
     Route: 065
     Dates: start: 20071025, end: 20071026

REACTIONS (5)
  - ANGIOEDEMA [None]
  - FACE OEDEMA [None]
  - HYPERSENSITIVITY [None]
  - LOCALISED OEDEMA [None]
  - RASH [None]
